FAERS Safety Report 8193172-7 (Version None)
Quarter: 2012Q1

REPORT INFORMATION
  Report Type: 
  Country: None (occurrence: None)
  Receive Date: 20120308
  Receipt Date: 20120229
  Transmission Date: 20120608
  Serious: Yes (Hospitalization)
  Sender: FDA-Public Use
  Company Number: IE-UCBSA-045424

PATIENT
  Age: 15 Year
  Sex: Male

DRUGS (4)
  1. VALPROATE SODIUM [Concomitant]
     Indication: CONVULSION
     Dosage: CRUSHABLE TABLETS
     Dates: start: 20020301, end: 20111112
  2. LIORESAL [Concomitant]
     Indication: MUSCLE SPASTICITY
     Dosage: 5 MG/ML
     Route: 048
     Dates: start: 20040510, end: 20111112
  3. KEPPRA [Suspect]
     Indication: EPILEPSY
     Route: 048
     Dates: start: 20110902, end: 20111101
  4. MOVIPREP [Concomitant]
     Indication: CONSTIPATION
     Dosage: SACHETS, 2 SACHETS TWICE WEEKLY

REACTIONS (2)
  - HYPOTHERMIA [None]
  - SINUS BRADYCARDIA [None]
